FAERS Safety Report 8095249-3 (Version None)
Quarter: 2012Q1

REPORT INFORMATION
  Report Type: 
  Country: None (occurrence: None)
  Receive Date: 20120129
  Receipt Date: 20111215
  Transmission Date: 20120608
  Serious: Yes (Other)
  Sender: FDA-Public Use
  Company Number: US-ABBOTT-11P-163-0884674-00

PATIENT
  Sex: Female

DRUGS (2)
  1. HUMIRA [Suspect]
     Indication: PRODUCT USED FOR UNKNOWN INDICATION
     Route: 058
     Dates: start: 20060401
  2. ANTIBIOTICS [Concomitant]
     Indication: BACTERIAL INFECTION

REACTIONS (3)
  - BACTERIAL INFECTION [None]
  - SINUS OPERATION [None]
  - PAROSMIA [None]
